FAERS Safety Report 8428719-6 (Version None)
Quarter: 2012Q2

REPORT INFORMATION
  Report Type: 
  Country: None (occurrence: None)
  Receive Date: 20120605
  Receipt Date: 20120524
  Transmission Date: 20120825
  Serious: Yes (Other)
  Sender: FDA-Public Use
  Company Number: 2012-000512

PATIENT
  Age: 66 Year
  Sex: Female

DRUGS (6)
  1. THYROID TAB [Concomitant]
  2. ACTONEL [Suspect]
     Dosage: DISAGE/FREQUENCY UNKNOWN, ORAL
     Route: 048
  3. ASPIRIN [Concomitant]
  4. VERAPAMIL [Concomitant]
  5. VITAMIN D [Concomitant]
  6. VITAMIN E [Concomitant]

REACTIONS (13)
  - LIMB ASYMMETRY [None]
  - ATYPICAL FEMUR FRACTURE [None]
  - FRACTURE DISPLACEMENT [None]
  - GROIN PAIN [None]
  - STRESS FRACTURE [None]
  - INTERVERTEBRAL DISC PROTRUSION [None]
  - PULMONARY EMBOLISM [None]
  - FALL [None]
  - DEEP VEIN THROMBOSIS [None]
  - OSTEOARTHRITIS [None]
  - FEMUR FRACTURE [None]
  - ARTHRALGIA [None]
  - RADICULITIS LUMBOSACRAL [None]
